FAERS Safety Report 7203317-0 (Version None)
Quarter: 2010Q4

REPORT INFORMATION
  Report Type: 
  Country: None (occurrence: None)
  Receive Date: 20101230
  Receipt Date: 20101216
  Transmission Date: 20110411
  Serious: No
  Sender: FDA-Public Use
  Company Number: US-BIOGENIDEC-2010BI044424

PATIENT
  Age: 25 Year
  Sex: Female

DRUGS (1)
  1. AVONEX [Suspect]
     Indication: MULTIPLE SCLEROSIS
     Route: 030
     Dates: start: 20101208

REACTIONS (11)
  - BURNING SENSATION [None]
  - CRYING [None]
  - DEAFNESS [None]
  - DRY MOUTH [None]
  - FALL [None]
  - HEAD INJURY [None]
  - HEADACHE [None]
  - INJECTION SITE PAIN [None]
  - SYNCOPE [None]
  - TREMOR [None]
  - VISUAL IMPAIRMENT [None]
